FAERS Safety Report 4538202-6 (Version None)
Quarter: 2004Q4

REPORT INFORMATION
  Report Type: 
  Country: None (occurrence: None)
  Receive Date: 20041221
  Receipt Date: 20041210
  Transmission Date: 20050328
  Serious: Yes (Other)
  Sender: FDA-Public Use
  Company Number: DEWYE271809DEC04

PATIENT
  Age: 46 Year
  Sex: Female

DRUGS (4)
  1. SIROLIMUS              (SIROLIMUS) [Suspect]
     Dates: start: 20040716
  2. CORTICOSTEROID NOS (CORTICOSTEROID NOS) [Suspect]
     Indication: PROPHYLAXIS AGAINST TRANSPLANT REJECTION
  3. MYCOPHENOLATE MOFETIL (MYCOPHENOLATE MOFETIL) [Suspect]
     Indication: PROPHYLAXIS AGAINST TRANSPLANT REJECTION
  4. TACROLIMUS, CONTROL FOR SIROLIMUS (TACROLIMUS, CONTROL FORSIROLIMUS) [Suspect]
     Indication: PROPHYLAXIS AGAINST TRANSPLANT REJECTION
     Dates: start: 20040707

REACTIONS (1)
  - LYMPHOCELE [None]
